FAERS Safety Report 24247170 (Version 1)
Quarter: 2024Q3

REPORT INFORMATION
  Report Type: Spontaneous
  Country: US (occurrence: US)
  Receive Date: 20240826
  Receipt Date: 20240826
  Transmission Date: 20241016
  Serious: No
  Sender: ALCON
  Company Number: US-ALCON LABORATORIES-ALC2023US004287

PATIENT
  Sex: Female

DRUGS (1)
  1. ZADITOR [Suspect]
     Active Substance: KETOTIFEN FUMARATE
     Indication: Product used for unknown indication
     Dosage: ONE DROP EACH EYES YESTERDAY ONCE
     Route: 047
     Dates: start: 20230912

REACTIONS (2)
  - Dizziness [Not Recovered/Not Resolved]
  - Impaired driving ability [Not Recovered/Not Resolved]

NARRATIVE: CASE EVENT DATE: 20230912
